FAERS Safety Report 6614978-9 (Version None)
Quarter: 2010Q1

REPORT INFORMATION
  Report Type: 
  Country: None (occurrence: None)
  Receive Date: 20100226
  Receipt Date: 20100205
  Transmission Date: 20100710
  Serious: Yes (Hospitalization)
  Sender: FDA-Public Use
  Company Number: THQ2010A00434

PATIENT
  Age: 59 Year
  Sex: Female

DRUGS (7)
  1. ACTOS [Suspect]
     Indication: DIABETES MELLITUS
     Dosage: 15 MG (15 MG, 1 IN 1 D)
     Dates: start: 20031224
  2. AMARYL [Concomitant]
  3. LIPITOR [Concomitant]
  4. MUCOSTA (REBAMIPIDE) [Concomitant]
  5. SOMALGEN (TALNIFLUMATE) [Concomitant]
  6. IMOTUN (ALL OTHER THERAPEUTIC PRODUCTS) [Concomitant]
  7. HIMETIN (CIMETIDINE) [Concomitant]

REACTIONS (3)
  - BLOOD GLUCOSE INCREASED [None]
  - DERMOID CYST [None]
  - RED BLOOD CELL SEDIMENTATION RATE INCREASED [None]
